FAERS Safety Report 12386012 (Version 1)
Quarter: 2016Q2

REPORT INFORMATION
  Report Type: Spontaneous
  Country: US (occurrence: US)
  Receive Date: 20160519
  Receipt Date: 20160519
  Transmission Date: 20160815
  Serious: No
  Sender: FDA-Public Use
  Company Number: US-ENDO PHARMACEUTICALS INC.-2016-002231

PATIENT
  Age: 62 Year
  Sex: Male
  Weight: 77.18 kg

DRUGS (2)
  1. LORAZEPAM TABLETS 1MG [Suspect]
     Active Substance: LORAZEPAM
     Indication: SLEEP DISORDER
  2. LORAZEPAM TABLETS 1MG [Suspect]
     Active Substance: LORAZEPAM
     Indication: ANXIETY
     Route: 048

REACTIONS (6)
  - Drug ineffective [Unknown]
  - Off label use [Unknown]
  - Intentional overdose [Unknown]
  - Unevaluable event [Unknown]
  - Drug ineffective for unapproved indication [Unknown]
  - Insomnia [Unknown]

NARRATIVE: CASE EVENT DATE: 2015
